FAERS Safety Report 10735911 (Version 3)
Quarter: 2015Q2

REPORT INFORMATION
  Report Type: Report from Study
  Country: JP (occurrence: None)
  Receive Date: 20150121
  Receipt Date: 20150629
  Transmission Date: 20150821
  Serious: Yes (Disabling, Other)
  Sender: FDA-Public Use
  Company Number: 2010JP005851

PATIENT
  Age: 40 Year
  Sex: Female
  Weight: 63 kg

DRUGS (15)
  1. LIPITOR [Concomitant]
     Active Substance: ATORVASTATIN CALCIUM
  2. RENIVACE (ENALAPRIL MALEATE) [Concomitant]
  3. ZETIA [Concomitant]
     Active Substance: EZETIMIBE
  4. FLUITRAN (TRICHLORMETHIAZIDE) [Concomitant]
  5. LASIX [Suspect]
     Active Substance: FUROSEMIDE
     Indication: PRODUCT USED FOR UNKNOWN INDICATION
     Route: 048
     Dates: end: 20111221
  6. BREDININ (MIZORIBINE) [Concomitant]
     Active Substance: MIZORIBINE
  7. BAYASPIRIN (ACETYLSALICYLIC ACID) [Concomitant]
  8. BONALON (ALENDRONATE SODIUIM HYDRATE) [Concomitant]
  9. PROGRAF [Suspect]
     Active Substance: TACROLIMUS\TACROLIMUS ANHYDROUS
     Indication: LUPUS NEPHRITIS
     Route: 048
     Dates: start: 20091216, end: 20120425
  10. PREDONINE [Suspect]
     Active Substance: PREDNISOLONE\PREDNISOLONE ACETATE\PREDNISOLONE SODIUM SUCCINATE
     Indication: LUPUS NEPHRITIS
     Route: 048
     Dates: end: 20100129
  11. MICARDIS [Concomitant]
     Active Substance: TELMISARTAN
  12. RASILEZ (ALISKIREN FUMARATE) [Concomitant]
  13. ALFAROL [Concomitant]
     Active Substance: ALFACALCIDOL
  14. AMLODIN (AMLODIPINE BESILATE) [Concomitant]
  15. OMEPRAL (OMEPRAZOLE) [Concomitant]
     Active Substance: OMEPRAZOLE

REACTIONS (7)
  - Systemic lupus erythematosus [None]
  - Condition aggravated [None]
  - Hyperlipidaemia [None]
  - Nephropathy [None]
  - Low density lipoprotein increased [None]
  - Protein urine present [None]
  - Hypertension [None]

NARRATIVE: CASE EVENT DATE: 20100118
